FAERS Safety Report 12380794 (Version 1)
Quarter: 2016Q2

REPORT INFORMATION
  Report Type: Report from Study
  Country: CA (occurrence: CA)
  Receive Date: 20160518
  Receipt Date: 20160518
  Transmission Date: 20160815
  Serious: Yes (Other)
  Sender: FDA-Public Use
  Company Number: CA-ROCHE-1757834

PATIENT
  Age: 74 Year
  Sex: Female

DRUGS (6)
  1. ELTROXIN [Concomitant]
     Active Substance: LEVOTHYROXINE
     Indication: HYPOTHYROIDISM
     Route: 065
     Dates: start: 200406
  2. ASA [Concomitant]
     Active Substance: ASPIRIN
     Indication: PROPHYLAXIS
     Route: 065
     Dates: start: 2012
  3. RANIBIZUMAB [Suspect]
     Active Substance: RANIBIZUMAB
     Route: 031
     Dates: start: 20140113, end: 20140113
  4. CORTISONE [Concomitant]
     Active Substance: CORTISONE\HYDROCORTISONE
     Indication: PRODUCT USED FOR UNKNOWN INDICATION
     Route: 065
  5. VITAMIN C [Concomitant]
     Active Substance: ASCORBIC ACID
     Indication: PROPHYLAXIS
     Route: 065
     Dates: start: 201311
  6. RANIBIZUMAB [Suspect]
     Active Substance: RANIBIZUMAB
     Indication: NEOVASCULAR AGE-RELATED MACULAR DEGENERATION
     Route: 031
     Dates: start: 20131212

REACTIONS (6)
  - Herpes zoster [Recovered/Resolved]
  - Rash [Recovered/Resolved]
  - Injury [Recovered/Resolved]
  - Retinal haemorrhage [Not Recovered/Not Resolved]
  - Fall [Unknown]
  - Tendon rupture [Recovered/Resolved]

NARRATIVE: CASE EVENT DATE: 20140113
